FAERS Safety Report 15209335 (Version 1)
Quarter: 2018Q3

REPORT INFORMATION
  Report Type: Spontaneous
  Country: CH (occurrence: CH)
  Receive Date: 20180727
  Receipt Date: 20180727
  Transmission Date: 20181010
  Serious: Yes (Death, Life-Threatening, Hospitalization, Other)
  Sender: FDA-Public Use
  Company Number: CH-ASTRAZENECA-2018SE92685

PATIENT
  Age: 61 Year
  Sex: Male

DRUGS (7)
  1. FORXIGA [Suspect]
     Active Substance: DAPAGLIFLOZIN
     Indication: TYPE 2 DIABETES MELLITUS
     Dosage: 10.0MG UNKNOWN
     Route: 048
     Dates: end: 20180630
  2. NOVORAPID [Suspect]
     Active Substance: INSULIN ASPART
     Indication: TYPE 2 DIABETES MELLITUS
     Dosage: 1.0DF UNKNOWN
     Route: 058
     Dates: end: 20180630
  3. BENERVA [Concomitant]
     Active Substance: THIAMINE HYDROCHLORIDE
     Dosage: 300.0MG UNKNOWN
     Route: 048
     Dates: end: 20180630
  4. CARVEDILOL. [Concomitant]
     Active Substance: CARVEDILOL
     Dosage: 6.25MG UNKNOWN
     Route: 048
     Dates: end: 20180630
  5. ASPIRIN CARDIO [Concomitant]
     Active Substance: ASPIRIN
     Dosage: 100.0MG UNKNOWN
     Route: 048
     Dates: end: 20180630
  6. CRESTASTATIN [Concomitant]
     Dosage: 5.0MG UNKNOWN
     Route: 048
     Dates: end: 20180630
  7. TRESIBA [Suspect]
     Active Substance: INSULIN DEGLUDEC
     Indication: TYPE 2 DIABETES MELLITUS
     Dosage: 32.0IU UNKNOWN
     Route: 058
     Dates: end: 20180630

REACTIONS (1)
  - Hypoglycaemic coma [Fatal]

NARRATIVE: CASE EVENT DATE: 20180630
